FAERS Safety Report 7709099-8 (Version None)
Quarter: 2011Q3

REPORT INFORMATION
  Report Type: 
  Country: None (occurrence: None)
  Receive Date: 20110825
  Receipt Date: 20110811
  Transmission Date: 20111222
  Serious: Yes (Other)
  Sender: FDA-Public Use
  Company Number: PHHY2011JP73931

PATIENT
  Age: 33 Year
  Sex: Female

DRUGS (4)
  1. DIOVAN [Suspect]
     Route: 048
     Dates: end: 20110501
  2. TENATRIL [Suspect]
     Dosage: 1 DF, DAILY
     Dates: end: 20110516
  3. ATELEC [Suspect]
     Route: 048
     Dates: end: 20110501
  4. METHYLDOPA [Concomitant]

REACTIONS (6)
  - AMNIOTIC FLUID VOLUME DECREASED [None]
  - POLYHYDRAMNIOS [None]
  - THREATENED LABOUR [None]
  - MATERNAL EXPOSURE DURING PREGNANCY [None]
  - PRE-ECLAMPSIA [None]
  - OLIGOHYDRAMNIOS [None]
